FAERS Safety Report 12127763 (Version 1)
Quarter: 2016Q1

REPORT INFORMATION
  Report Type: Spontaneous
  Country: FR (occurrence: FR)
  Receive Date: 20160229
  Receipt Date: 20160229
  Transmission Date: 20160526
  Serious: Yes (Hospitalization, Other)
  Sender: FDA-Public Use
  Company Number: FR-BAXTER-2016BAX008567

PATIENT
  Age: 46 Year
  Sex: Male

DRUGS (11)
  1. INIPOMP [Concomitant]
     Active Substance: PANTOPRAZOLE SODIUM
     Indication: PRODUCT USED FOR UNKNOWN INDICATION
     Route: 048
  2. MESNA. [Concomitant]
     Active Substance: MESNA
     Dosage: TWO LOTS ON D3
     Route: 065
     Dates: start: 20160122, end: 20160122
  3. HOLOXAN 2000 MG, POUDRE POUR USAGE PARENT?RAL [Suspect]
     Active Substance: IFOSFAMIDE
     Indication: HODGKIN^S DISEASE RECURRENT
     Dosage: ON D2
     Route: 042
     Dates: start: 20160121, end: 20160121
  4. ETOPOSIDE TEVA [Suspect]
     Active Substance: ETOPOSIDE
     Indication: HODGKIN^S DISEASE RECURRENT
     Dosage: ON D1, D2, AND D3,
     Route: 042
     Dates: start: 20160120, end: 20160122
  5. XANAX [Concomitant]
     Active Substance: ALPRAZOLAM
     Indication: PRODUCT USED FOR UNKNOWN INDICATION
     Route: 048
  6. GRANOCYTE [Concomitant]
     Active Substance: LENOGRASTIM
     Indication: PRODUCT USED FOR UNKNOWN INDICATION
     Dosage: 34 FROM D6 TO D13
     Route: 065
     Dates: start: 20160125, end: 20160201
  7. TAMIFLU [Suspect]
     Active Substance: OSELTAMIVIR PHOSPHATE
     Indication: ANTIVIRAL PROPHYLAXIS
     Route: 048
     Dates: start: 20160201, end: 20160210
  8. ZOPHREN [Concomitant]
     Active Substance: ONDANSETRON
     Indication: PRODUCT USED FOR UNKNOWN INDICATION
     Dosage: ON D1, D2, AND D3
     Route: 065
     Dates: start: 20160120, end: 20160122
  9. PRIMPERAN [Concomitant]
     Active Substance: METOCLOPRAMIDE HYDROCHLORIDE
     Indication: PRODUCT USED FOR UNKNOWN INDICATION
     Route: 048
  10. CARBOPLATINE SUN [Suspect]
     Active Substance: CARBOPLATIN
     Indication: HODGKIN^S DISEASE RECURRENT
     Dosage: ON D2
     Route: 042
     Dates: start: 20160121, end: 20160121
  11. MESNA. [Concomitant]
     Active Substance: MESNA
     Indication: PRODUCT USED FOR UNKNOWN INDICATION
     Dosage: ON D2
     Route: 065
     Dates: start: 20160121, end: 20160121

REACTIONS (8)
  - Acute coronary syndrome [Unknown]
  - Arteriosclerosis coronary artery [None]
  - Drug intolerance [Unknown]
  - General physical health deterioration [Unknown]
  - Vomiting [Unknown]
  - Erythema [Unknown]
  - Agranulocytosis [Unknown]
  - Nasopharyngitis [Unknown]

NARRATIVE: CASE EVENT DATE: 20160120
